FAERS Safety Report 4279933-5 (Version None)
Quarter: 2004Q1

REPORT INFORMATION
  Report Type: 
  Country: None (occurrence: None)
  Receive Date: 20040126
  Receipt Date: 20040116
  Transmission Date: 20041129
  Serious: Yes (Other)
  Sender: FDA-Public Use
  Company Number: 2004195111NO

PATIENT
  Age: 67 Year
  Sex: Female

DRUGS (2)
  1. ZYVOX [Suspect]
     Indication: ENDOCARDITIS
     Dosage: UNK, UNK; ORAL
     Route: 048
  2. VANCOMYCIN [Concomitant]

REACTIONS (3)
  - BLOOD DISORDER [None]
  - HAEMOGLOBIN DECREASED [None]
  - RED BLOOD CELL COUNT DECREASED [None]
